FAERS Safety Report 18394124 (Version 1)
Quarter: 2020Q4

REPORT INFORMATION
  Report Type: Spontaneous
  Country: DK (occurrence: DK)
  Receive Date: 20201016
  Receipt Date: 20201016
  Transmission Date: 20210114
  Serious: Yes (Hospitalization)
  Sender: FDA-Public Use
  Company Number: DK-ABBVIE-20K-044-3608827-00

PATIENT
  Age: 17 Year
  Sex: Female

DRUGS (1)
  1. HUMIRA [Suspect]
     Active Substance: ADALIMUMAB
     Indication: CROHN^S DISEASE
     Dosage: DOSE INTERVAL: UNKNOWN?STRENGTH:UNKNOWN
     Route: 058
     Dates: start: 20100224, end: 20111118

REACTIONS (13)
  - Rash vesicular [Unknown]
  - Rash pruritic [Unknown]
  - Erythromelalgia [Unknown]
  - Rash erythematous [Unknown]
  - Psoriasis [Recovering/Resolving]
  - Wound secretion [Unknown]
  - Localised infection [Unknown]
  - Erythema [Unknown]
  - Nail bed disorder [Unknown]
  - Nail psoriasis [Unknown]
  - Eczema infected [Unknown]
  - Pain [Unknown]
  - Paradoxical drug reaction [Unknown]

NARRATIVE: CASE EVENT DATE: 201004
